FAERS Safety Report 25675500 (Version 1)
Quarter: 2025Q3

REPORT INFORMATION
  Report Type: Spontaneous
  Country: JP (occurrence: JP)
  Receive Date: 20250813
  Receipt Date: 20250813
  Transmission Date: 20251021
  Serious: Yes (Hospitalization, Other)
  Sender: AKEBIA THERAPEUTICS
  Company Number: JP-IQVIA-JT2024JP000037

PATIENT
  Age: 90 Year
  Sex: Male
  Weight: 41 kg

DRUGS (10)
  1. FERRIC CITRATE ANHYDROUS [Suspect]
     Active Substance: FERRIC CITRATE ANHYDROUS
     Indication: Product used for unknown indication
     Dosage: 250 MILLIGRAM, QD
     Route: 048
     Dates: start: 20240417, end: 20241216
  2. FERRIC CITRATE ANHYDROUS [Suspect]
     Active Substance: FERRIC CITRATE ANHYDROUS
     Indication: Hyperphosphataemia
  3. ENARODUSTAT [Suspect]
     Active Substance: ENARODUSTAT
     Indication: Nephrogenic anaemia
     Dosage: 2 MILLIGRAM, QD
     Route: 048
     Dates: start: 20240116
  4. ENARODUSTAT [Suspect]
     Active Substance: ENARODUSTAT
     Dosage: 4 MILLIGRAM, QD
     Route: 048
     Dates: start: 20240206
  5. ENARODUSTAT [Suspect]
     Active Substance: ENARODUSTAT
     Dosage: 6 MILLIGRAM, QD
     Route: 048
     Dates: start: 20240305
  6. ENARODUSTAT [Suspect]
     Active Substance: ENARODUSTAT
     Dosage: 4 MILLIGRAM, QD
     Route: 048
     Dates: start: 20240528
  7. DIOVAN [Concomitant]
     Active Substance: VALSARTAN
     Indication: Hypertension
     Dosage: 40 MILLIGRAM, QD
     Route: 048
     Dates: end: 20241028
  8. NIFEDIPINE [Concomitant]
     Active Substance: NIFEDIPINE
     Indication: Hypertension
     Dosage: 20 MILLIGRAM, QD
     Route: 048
     Dates: end: 20240506
  9. HARNAL [Concomitant]
     Active Substance: TAMSULOSIN HYDROCHLORIDE
     Indication: Benign prostatic hyperplasia
     Dosage: 0.2 MILLIGRAM, QD
     Route: 048
  10. FEBUXOSTAT [Concomitant]
     Active Substance: FEBUXOSTAT
     Indication: Nephrosclerosis
     Dosage: 10 MILLIGRAM, QD
     Route: 048
     Dates: end: 20240527

REACTIONS (6)
  - Shunt occlusion [Not Recovered/Not Resolved]
  - Hypertension [Not Recovered/Not Resolved]
  - N-terminal prohormone brain natriuretic peptide increased [Recovering/Resolving]
  - Hyperphosphataemia [Recovering/Resolving]
  - Periarthritis [Recovered/Resolved]
  - Rotator cuff syndrome [Recovered/Resolved]

NARRATIVE: CASE EVENT DATE: 20240416
